FAERS Safety Report 6637011-1 (Version None)
Quarter: 2010Q1

REPORT INFORMATION
  Report Type: 
  Country: None (occurrence: None)
  Receive Date: 20100301
  Receipt Date: 20090320
  Transmission Date: 20100710
  Serious: Yes (Hospitalization)
  Sender: FDA-Public Use
  Company Number: RB-12208-2009

PATIENT
  Age: 46 Year
  Sex: Male
  Weight: 133.8111 kg

DRUGS (5)
  1. SUBOXONE [Suspect]
     Indication: DRUG DEPENDENCE
     Dosage: 32 MG QD SUBLINGUAL; SEE IMAGE
     Route: 060
     Dates: start: 20090101, end: 20090301
  2. SUBOXONE [Suspect]
     Indication: DRUG DEPENDENCE
     Dosage: 32 MG QD SUBLINGUAL; SEE IMAGE
     Route: 060
     Dates: start: 20090301, end: 20090401
  3. BENICAR [Concomitant]
  4. COREG [Concomitant]
  5. SULAR [Concomitant]

REACTIONS (6)
  - CONSTIPATION [None]
  - FLUID RETENTION [None]
  - NIGHTMARE [None]
  - OEDEMA PERIPHERAL [None]
  - URTICARIA [None]
  - WEIGHT INCREASED [None]
